FAERS Safety Report 10792183 (Version 2)
Quarter: 2016Q3

REPORT INFORMATION
  Report Type: Spontaneous
  Country: CA (occurrence: CA)
  Receive Date: 20150213
  Receipt Date: 20160916
  Transmission Date: 20161109
  Serious: Yes (Hospitalization)
  Sender: FDA-Public Use
  Company Number: CA-ASTRAZENECA-2015SE13023

PATIENT
  Age: 83 Year
  Sex: Female
  Weight: 70.3 kg

DRUGS (23)
  1. TICAGRELOR [Suspect]
     Active Substance: TICAGRELOR
     Indication: MYOCARDIAL INFARCTION
     Route: 048
     Dates: start: 20140910, end: 20140920
  2. LUMIGAN [Concomitant]
     Active Substance: BIMATOPROST
     Dates: start: 2007
  3. NITRO [Concomitant]
     Active Substance: NITROGLYCERIN
     Dates: start: 20140123
  4. DIAMICRON MR [Concomitant]
     Active Substance: GLICLAZIDE
     Dates: start: 20140620
  5. VITAMIN B12 [Concomitant]
     Active Substance: CYANOCOBALAMIN
     Dates: start: 20140620
  6. CHOLECALCIFEROL [Concomitant]
     Active Substance: CHOLECALCIFEROL
     Dates: start: 2010
  7. ASAPHEN [Concomitant]
     Active Substance: ASPIRIN
     Dates: start: 20140910
  8. JAMP K 20 [Concomitant]
     Dates: start: 20140210
  9. FUROSEMIDE. [Concomitant]
     Active Substance: FUROSEMIDE
     Dates: start: 20140203
  10. ACETAMINOPHEN. [Concomitant]
     Active Substance: ACETAMINOPHEN
     Dates: start: 20140206
  11. CELECOXIB. [Suspect]
     Active Substance: CELECOXIB
     Indication: OSTEOARTHRITIS
     Dosage: THREE TIMES A DAY
     Route: 048
     Dates: start: 20130130, end: 20140122
  12. ROSUVASTATIN. [Concomitant]
     Active Substance: ROSUVASTATIN
     Dates: start: 20140206
  13. METOPROLOL. [Concomitant]
     Active Substance: METOPROLOL
     Dates: start: 20140131
  14. ATIVAN [Concomitant]
     Active Substance: LORAZEPAM
     Dates: start: 20140127
  15. COMBIGAN [Concomitant]
     Active Substance: BRIMONIDINE TARTRATE\TIMOLOL MALEATE
     Dates: start: 2007
  16. NEXIUM [Suspect]
     Active Substance: ESOMEPRAZOLE MAGNESIUM
     Route: 048
  17. DETROL LA [Concomitant]
     Active Substance: TOLTERODINE TARTRATE
     Dates: start: 2009
  18. METFORMIN [Concomitant]
     Active Substance: METFORMIN HYDROCHLORIDE
     Dates: start: 20140314
  19. TIMOLOL XE [Concomitant]
     Active Substance: TIMOLOL
     Dates: start: 20130408
  20. PANTOPRAZOLE [Concomitant]
     Active Substance: PANTOPRAZOLE SODIUM
     Dates: start: 20140620
  21. GABAPENTIN. [Concomitant]
     Active Substance: GABAPENTIN
     Dates: start: 20140206
  22. FERROUS SULFATE. [Concomitant]
     Active Substance: FERROUS SULFATE
     Dates: start: 20140728, end: 20140920
  23. CAL 500 [Concomitant]
     Dates: start: 2010

REACTIONS (1)
  - Anaemia [Recovered/Resolved]

NARRATIVE: CASE EVENT DATE: 20140920
